FAERS Safety Report 9774130 (Version 3)
Quarter: 2014Q3

REPORT INFORMATION
  Report Type: Report from Study
  Country: BR (occurrence: BR)
  Receive Date: 20131220
  Receipt Date: 20140909
  Transmission Date: 20150326
  Serious: Yes (Hospitalization, Other)
  Sender: FDA-Public Use
  Company Number: BR-ROCHE-1322383

PATIENT
  Sex: Female
  Weight: 62 kg

DRUGS (5)
  1. BROMAZEPAM [Suspect]
     Active Substance: BROMAZEPAM
     Indication: INSOMNIA
     Dosage: CAPTURED AS LEXOTAN
     Route: 065
     Dates: start: 20140120
  2. ATENOLOL. [Concomitant]
     Active Substance: ATENOLOL
     Route: 065
  3. ACTEMRA [Suspect]
     Active Substance: TOCILIZUMAB
     Indication: RHEUMATOID ARTHRITIS
     Dosage: LATEST INFUSION WAS PERFORMED ON 06/NOV/2013.
     Route: 042
     Dates: start: 20130702
  4. METHOTREXATE [Concomitant]
     Active Substance: METHOTREXATE
  5. LOSARTAN [Concomitant]
     Active Substance: LOSARTAN

REACTIONS (5)
  - Fibromyalgia [Recovering/Resolving]
  - Hypersomnia [Recovered/Resolved]
  - Rheumatoid arthritis [Unknown]
  - Hallucination [Recovered/Resolved]
  - Hypertension [Recovering/Resolving]
